FAERS Safety Report 20165430 (Version 3)
Quarter: 2022Q1

REPORT INFORMATION
  Report Type: Spontaneous
  Country: US (occurrence: US)
  Receive Date: 20211209
  Receipt Date: 20220317
  Transmission Date: 20220424
  Serious: No
  Sender: FDA-Public Use
  Company Number: US-BAYER-2021A264924

PATIENT
  Age: 67 Year
  Sex: Female

DRUGS (5)
  1. MIRALAX [Suspect]
     Active Substance: POLYETHYLENE GLYCOL 3350
     Indication: Bowel movement irregularity
     Dosage: 1 DF, QD
     Route: 048
     Dates: start: 20180101
  2. JANUVIA [Concomitant]
     Active Substance: SITAGLIPTIN PHOSPHATE
     Indication: Diabetes mellitus
     Dosage: UNK
  3. ATENOLOL [Concomitant]
     Active Substance: ATENOLOL
     Dosage: UNK
  4. LOSARTAN [Concomitant]
     Active Substance: LOSARTAN
     Dosage: UNK
  5. ESOMEPRAZOLE MAGNESIUM [Concomitant]
     Active Substance: ESOMEPRAZOLE MAGNESIUM
     Indication: Gastrooesophageal reflux disease
     Dosage: UNK

REACTIONS (11)
  - Abdominal rigidity [Recovered/Resolved]
  - Abdominal pain upper [Recovered/Resolved]
  - Diarrhoea [Recovered/Resolved]
  - Product odour abnormal [None]
  - Product taste abnormal [None]
  - Abdominal distension [Recovered/Resolved]
  - Faeces soft [Recovered/Resolved]
  - Gastrointestinal pain [Recovered/Resolved]
  - Diarrhoea [Recovered/Resolved]
  - Product taste abnormal [None]
  - Product odour abnormal [None]

NARRATIVE: CASE EVENT DATE: 20211127
